FAERS Safety Report 26044577 (Version 3)
Quarter: 2025Q4

REPORT INFORMATION
  Report Type: Spontaneous
  Country: US (occurrence: US)
  Receive Date: 20251114
  Receipt Date: 20251224
  Transmission Date: 20260117
  Serious: No
  Sender: TOLMAR
  Company Number: US-Tolmar-TLM-2025-08338

PATIENT

DRUGS (3)
  1. ELIGARD [Suspect]
     Active Substance: LEUPROLIDE ACETATE
     Indication: Product used for unknown indication
     Dosage: BOX: 15369CUS EXP 12/2026?SN: 1445117485739?GTIN: 00362935227106?SYRINGE A: 15369AUS EXP 01/2027?SYR
  2. ELIGARD [Suspect]
     Active Substance: LEUPROLIDE ACETATE
     Dosage: REPLACEMENT DOSE GIVEN
  3. DEVICE [Suspect]
     Active Substance: DEVICE
     Indication: Product used for unknown indication
     Dosage: BOX: 15369CUS EXP 12/2026?SN: 1445117485739?GTIN: 00362935227106?SYRINGE A: 15369AUS EXP 01/2027?SYR

REACTIONS (2)
  - Intercepted product preparation error [Unknown]
  - Device occlusion [Unknown]
